FAERS Safety Report 7990314-0 (Version None)
Quarter: 2011Q4

REPORT INFORMATION
  Report Type: 
  Country: None (occurrence: None)
  Receive Date: 20111219
  Receipt Date: 20110613
  Transmission Date: 20120403
  Serious: No
  Sender: FDA-Public Use
  Company Number: US-ASTRAZENECA-2011SE32100

PATIENT
  Sex: Female

DRUGS (2)
  1. METOPROLOL TARTRATE [Concomitant]
  2. CRESTOR [Suspect]
     Route: 048
     Dates: start: 20110301, end: 20110501

REACTIONS (4)
  - PRURITUS [None]
  - FACE OEDEMA [None]
  - OEDEMA PERIPHERAL [None]
  - RASH [None]
